FAERS Safety Report 5895819-4 (Version None)
Quarter: 2008Q3

REPORT INFORMATION
  Report Type: 
  Country: None (occurrence: None)
  Receive Date: 20080822
  Receipt Date: 20071024
  Transmission Date: 20090109
  Serious: Yes (Life-Threatening)
  Sender: FDA-Public Use
  Company Number: 20070288

PATIENT
  Age: 61 Year
  Sex: Male

DRUGS (1)
  1. ACETYLCYSTEINE [Suspect]
     Dosage: 3 ML BID X 2 DAYS ORAL
     Route: 048
     Dates: start: 20071017, end: 20071019

REACTIONS (1)
  - HYPERSENSITIVITY [None]
